FAERS Safety Report 19047380 (Version 1)
Quarter: 2021Q1

REPORT INFORMATION
  Report Type: Spontaneous
  Country: GB (occurrence: GB)
  Receive Date: 20210323
  Receipt Date: 20210323
  Transmission Date: 20210420
  Serious: Yes (Other)
  Sender: FDA-Public Use
  Company Number: NVSC2021GB065604

PATIENT
  Age: 29 Year
  Sex: Female

DRUGS (3)
  1. TERBINAFINE. [Suspect]
     Active Substance: TERBINAFINE
     Indication: BRONCHOPULMONARY ASPERGILLOSIS
     Dosage: UNK
     Route: 065
  2. AMPHOTERICIN B DEOXYCHOLATE [Concomitant]
     Active Substance: AMPHOTERICIN B
     Indication: BRONCHOPULMONARY ASPERGILLOSIS
     Dosage: 25 MG, BID, NEBULIZIED
     Route: 065
  3. POSACONAZOLE [Concomitant]
     Active Substance: POSACONAZOLE
     Indication: BRONCHOPULMONARY ASPERGILLOSIS
     Dosage: UNK
     Route: 065

REACTIONS (3)
  - Bronchopulmonary aspergillosis [Unknown]
  - Product use in unapproved indication [Unknown]
  - Disease progression [Unknown]
